FAERS Safety Report 23902722 (Version 1)
Quarter: 2024Q2

REPORT INFORMATION
  Report Type: Spontaneous
  Country: US (occurrence: US)
  Receive Date: 20240527
  Receipt Date: 20240527
  Transmission Date: 20240715
  Serious: No
  Sender: FDA-Public Use
  Company Number: US-JNJFOC-20240567391

PATIENT
  Sex: Male

DRUGS (2)
  1. RISPERDAL [Suspect]
     Active Substance: RISPERIDONE
     Indication: Attention deficit hyperactivity disorder
     Route: 048
     Dates: end: 2011
  2. RISPERDAL [Suspect]
     Active Substance: RISPERIDONE
     Indication: Abnormal behaviour
     Route: 048
     Dates: start: 2012

REACTIONS (4)
  - Lip haemorrhage [Unknown]
  - Scab [Unknown]
  - Gynaecomastia [Unknown]
  - Dyskinesia [Unknown]

NARRATIVE: CASE EVENT DATE: 20120101
